FAERS Safety Report 7304830-8 (Version None)
Quarter: 2011Q1

REPORT INFORMATION
  Report Type: 
  Country: None (occurrence: None)
  Receive Date: 20110222
  Receipt Date: 20110209
  Transmission Date: 20110831
  Serious: No
  Sender: FDA-Public Use
  Company Number: US-PFIZER INC-US-WYE-H14670210

PATIENT
  Sex: Female
  Weight: 83.9 kg

DRUGS (5)
  1. CODEINE [Concomitant]
  2. XANAX [Concomitant]
  3. AMBIEN [Concomitant]
  4. PRISTIQ [Suspect]
     Indication: DEPRESSION
     Dosage: 50.0 MG, 1X/DAY
     Route: 065
     Dates: start: 20100414
  5. SOMA [Concomitant]

REACTIONS (3)
  - DRY MOUTH [None]
  - CONSTIPATION [None]
  - HEADACHE [None]
